FAERS Safety Report 15760647 (Version 1)
Quarter: 2018Q4

REPORT INFORMATION
  Report Type: Spontaneous
  Country: US (occurrence: US)
  Receive Date: 20181226
  Receipt Date: 20181226
  Transmission Date: 20190205
  Serious: No
  Sender: FDA-Public Use
  Company Number: US-PFIZER INC-2018524951

PATIENT
  Age: 48 Year
  Sex: Female

DRUGS (3)
  1. SOMAVERT [Suspect]
     Active Substance: PEGVISOMANT
     Indication: ACROMEGALY
     Dosage: 10 MG, UNK
     Route: 058
  2. SOMAVERT [Suspect]
     Active Substance: PEGVISOMANT
     Dosage: 10 MG, DAILY
     Route: 058
     Dates: start: 201807
  3. SOMAVERT [Suspect]
     Active Substance: PEGVISOMANT
     Dosage: 10 MG, UNK (5 DAYS PER WEEK)
     Route: 058
     Dates: start: 201809

REACTIONS (1)
  - Diarrhoea [Recovered/Resolved]

NARRATIVE: CASE EVENT DATE: 2018
